FAERS Safety Report 18556441 (Version 3)
Quarter: 2021Q1

REPORT INFORMATION
  Report Type: Spontaneous
  Country: FR (occurrence: FR)
  Receive Date: 20201128
  Receipt Date: 20210107
  Transmission Date: 20210419
  Serious: Yes (Other)
  Sender: FDA-Public Use
  Company Number: FR-ABBVIE-20P-056-3668258-00

PATIENT
  Age: 47 Year
  Sex: Female

DRUGS (5)
  1. TEMESTA [Concomitant]
     Indication: ANXIOLYTIC THERAPY
     Dosage: 1 MILLIGRAM, QD
  2. ENANTONE LP [Suspect]
     Active Substance: LEUPROLIDE ACETATE
     Dosage: UNK
     Route: 065
     Dates: start: 20200907
  3. HAVLANE [Concomitant]
     Active Substance: LOPRAZOLAM
     Indication: INSOMNIA
  4. ENANTONE LP [Suspect]
     Active Substance: LEUPROLIDE ACETATE
     Indication: ADENOMYOSIS
     Dosage: 3.75 MILLIGRAM
     Route: 065
  5. HAVLANE [Concomitant]
     Active Substance: LOPRAZOLAM
     Indication: HOT FLUSH
     Dosage: UNK

REACTIONS (10)
  - Lacrimation increased [Unknown]
  - Vaginal haemorrhage [Unknown]
  - Headache [Unknown]
  - Eye pain [Unknown]
  - Abdominal pain lower [Unknown]
  - Eye pruritus [Unknown]
  - Breast enlargement [Unknown]
  - Fatigue [Unknown]
  - Injection site pain [Unknown]
  - Tendonitis [Unknown]
